FAERS Safety Report 5372626-2 (Version None)
Quarter: 2007Q2

REPORT INFORMATION
  Report Type: 
  Country: None (occurrence: None)
  Receive Date: 20070615
  Receipt Date: 20060522
  Transmission Date: 20071010
  Serious: Yes (Other)
  Sender: FDA-Public Use
  Company Number: 200611125US

PATIENT
  Age: 75 Year
  Sex: Male

DRUGS (8)
  1. LANTUS [Suspect]
     Indication: DIABETES MELLITUS NON-INSULIN-DEPENDENT
     Dosage: 22 U HS SC
     Route: 058
     Dates: start: 20060101
  2. NOVOLOG [Concomitant]
  3. REGULAR INSULIN [Concomitant]
  4. CLOPIDOGREL (PLAVIX /01220701/) [Concomitant]
  5. ATORVASTATIN CALCIUM (LIPITOR) [Concomitant]
  6. LISINOPRIL [Concomitant]
  7. ATENOLOL [Concomitant]
  8. AMLODIPINE (NORVASC /00972401/) [Concomitant]

REACTIONS (3)
  - BLOOD GLUCOSE INCREASED [None]
  - HYPOGLYCAEMIA [None]
  - VISUAL DISTURBANCE [None]
